FAERS Safety Report 24370780 (Version 2)
Quarter: 2025Q3

REPORT INFORMATION
  Report Type: Spontaneous
  Country: US (occurrence: US)
  Receive Date: 20240927
  Receipt Date: 20250925
  Transmission Date: 20251021
  Serious: Yes (Hospitalization, Other)
  Sender: RECKITT BENCKISER
  Company Number: US-Indivior Limited-INDV-145195-2024

PATIENT
  Age: 31 Year
  Sex: Male

DRUGS (2)
  1. PERSERIS [Suspect]
     Active Substance: RISPERIDONE
     Indication: Schizophrenia
     Dosage: UNK, QMO
     Route: 065
     Dates: start: 20230620
  2. PERSERIS [Suspect]
     Active Substance: RISPERIDONE
     Dosage: UNK, QMO
     Route: 065
     Dates: start: 20240422

REACTIONS (1)
  - Pulmonary embolism [Recovering/Resolving]

NARRATIVE: CASE EVENT DATE: 20240513
